FAERS Safety Report 6154217-9 (Version None)
Quarter: 2009Q2

REPORT INFORMATION
  Report Type: 
  Country: None (occurrence: None)
  Receive Date: 20090414
  Receipt Date: 20090406
  Transmission Date: 20091009
  Serious: Yes (Other)
  Sender: FDA-Public Use
  Company Number: KP-TYCO HEALTHCARE/MALLINCKRODT-T200900817

PATIENT
  Age: 54 Year
  Sex: Female

DRUGS (1)
  1. SODIUM IODIDE I 131 [Suspect]
     Indication: THYROID CANCER
     Dosage: 180 MCI, UNK

REACTIONS (2)
  - ACUTE MYELOID LEUKAEMIA [None]
  - REFRACTORY ANAEMIA WITH AN EXCESS OF BLASTS [None]
